FAERS Safety Report 4291390-1 (Version None)
Quarter: 2004Q1

REPORT INFORMATION
  Report Type: 
  Country: None (occurrence: None)
  Receive Date: 20040211
  Receipt Date: 20040202
  Transmission Date: 20041129
  Serious: Yes (Life-Threatening)
  Sender: FDA-Public Use
  Company Number: PHFR2004GB00833

PATIENT
  Sex: Male

DRUGS (3)
  1. CLOZAPINE [Suspect]
     Indication: SCHIZOPHRENIA
     Dosage: 100MG/DAY
     Route: 048
     Dates: start: 20031113, end: 20031229
  2. FORCEVAL [Concomitant]
     Indication: MALNUTRITION
     Dosage: 1 TABLET
     Route: 048
     Dates: start: 19990101
  3. PAROXETINE [Concomitant]
     Indication: OBSESSIVE-COMPULSIVE DISORDER
     Dosage: 60MG/DAY
     Route: 048
     Dates: start: 19990101

REACTIONS (5)
  - DENTAL EXAMINATION ABNORMAL [None]
  - HYPERTENSION [None]
  - SALIVARY HYPERSECRETION [None]
  - TACHYCARDIA [None]
  - URINARY INCONTINENCE [None]
